FAERS Safety Report 6228223-X (Version None)
Quarter: 2009Q2

REPORT INFORMATION
  Report Type: 
  Country: None (occurrence: None)
  Receive Date: 20090612
  Receipt Date: 20090609
  Transmission Date: 20091009
  Serious: Yes (Death)
  Sender: FDA-Public Use
  Company Number: US-ELI_LILLY_AND_COMPANY-US200906002475

PATIENT
  Age: 75 Year
  Sex: Female

DRUGS (4)
  1. ALIMTA [Suspect]
     Indication: ADENOCARCINOMA
     Dates: start: 20070101, end: 20070101
  2. FOLIC ACID [Concomitant]
  3. VITAMIN B-12 [Concomitant]
  4. DEXAMETHASONE [Concomitant]
     Indication: PREMEDICATION

REACTIONS (1)
  - SUDDEN DEATH [None]
